FAERS Safety Report 19817342 (Version 1)
Quarter: 2021Q3

REPORT INFORMATION
  Report Type: Spontaneous
  Country: US (occurrence: US)
  Receive Date: 20210910
  Receipt Date: 20210910
  Transmission Date: 20211014
  Serious: No
  Sender: FDA-Public Use
  Company Number: US-3M-2020-US-026074

PATIENT
  Age: 34 Year
  Sex: Female
  Weight: 39.46 kg

DRUGS (1)
  1. PERIDEX [Suspect]
     Active Substance: CHLORHEXIDINE GLUCONATE
     Indication: ORAL MUCOSAL ERYTHEMA
     Dosage: 1 TABLESPOON BID
     Route: 048
     Dates: start: 20201223, end: 20201224

REACTIONS (2)
  - Oral disorder [Recovered/Resolved]
  - Paraesthesia oral [Not Recovered/Not Resolved]

NARRATIVE: CASE EVENT DATE: 20201223
